FAERS Safety Report 19643487 (Version 1)
Quarter: 2021Q3

REPORT INFORMATION
  Report Type: Spontaneous
  Country: JP (occurrence: JP)
  Receive Date: 20210730
  Receipt Date: 20210730
  Transmission Date: 20211014
  Serious: Yes (Other)
  Sender: FDA-Public Use
  Company Number: JP-TEVA-2021-JP-003585J

PATIENT
  Sex: Male

DRUGS (1)
  1. LANSOPRAZOLE OD TABLET 30MG TAKEDA TEVA [Suspect]
     Active Substance: LANSOPRAZOLE
     Indication: PRODUCT USED FOR UNKNOWN INDICATION
     Route: 048

REACTIONS (5)
  - Burning sensation mucosal [Unknown]
  - Interstitial lung disease [Unknown]
  - Pain [Unknown]
  - Gastrooesophageal reflux disease [Unknown]
  - Therapeutic product effect incomplete [Unknown]
